FAERS Safety Report 21870918 (Version 1)
Quarter: 2023Q1

REPORT INFORMATION
  Report Type: Spontaneous
  Country: US (occurrence: US)
  Receive Date: 20230117
  Receipt Date: 20230117
  Transmission Date: 20230417
  Serious: Yes (Other)
  Sender: FDA-Public Use
  Company Number: US-SA-2023SA015185

PATIENT
  Age: 70 Year
  Sex: Female

DRUGS (1)
  1. LANTUS SOLOSTAR [Suspect]
     Active Substance: INSULIN GLARGINE
     Dosage: 40 IU, QD

REACTIONS (4)
  - Coma [Unknown]
  - Enterobacter sepsis [Unknown]
  - Mouth cyst [Unknown]
  - Gait inability [Unknown]

NARRATIVE: CASE EVENT DATE: 20220801
